FAERS Safety Report 12859802 (Version 1)
Quarter: 2016Q4

REPORT INFORMATION
  Report Type: Spontaneous
  Country: US (occurrence: US)
  Receive Date: 20161018
  Receipt Date: 20161018
  Transmission Date: 20170207
  Serious: Yes (Death, Hospitalization)
  Sender: FDA-Public Use
  Company Number: None

PATIENT
  Age: 73 Year
  Sex: Male
  Weight: 178.5 kg

DRUGS (3)
  1. PRAVASTATIN SODIUM. [Suspect]
     Active Substance: PRAVASTATIN SODIUM
     Dates: end: 20160930
  2. CYTARABINE. [Suspect]
     Active Substance: CYTARABINE
     Dates: end: 20160930
  3. IDARUBICIN [Suspect]
     Active Substance: IDARUBICIN
     Dates: end: 20160928

REACTIONS (7)
  - Atrial fibrillation [None]
  - Intestinal obstruction [None]
  - Renal failure [None]
  - Multiple organ dysfunction syndrome [None]
  - Intestinal ischaemia [None]
  - Gastrointestinal necrosis [None]
  - Diarrhoea [None]

NARRATIVE: CASE EVENT DATE: 20161009
